FAERS Safety Report 5727840-0 (Version None)
Quarter: 2008Q2

REPORT INFORMATION
  Report Type: 
  Country: None (occurrence: None)
  Receive Date: 20080505
  Receipt Date: 20080423
  Transmission Date: 20081010
  Serious: Yes (Other)
  Sender: FDA-Public Use
  Company Number: FR-PFIZER INC-2008036944

PATIENT
  Sex: Male

DRUGS (5)
  1. CHANTIX [Suspect]
     Dates: start: 20071101, end: 20080401
  2. LAMIVUDINE [Concomitant]
  3. DIDANOSINE [Concomitant]
  4. ATAZANAVIR SULFATE [Concomitant]
  5. ISENTRESS [Concomitant]

REACTIONS (14)
  - BONE PAIN [None]
  - CHEST PAIN [None]
  - FATIGUE [None]
  - HEADACHE [None]
  - MAJOR DEPRESSION [None]
  - MYALGIA [None]
  - NAUSEA [None]
  - NIGHTMARE [None]
  - PALPITATIONS [None]
  - PYREXIA [None]
  - SLEEP DISORDER [None]
  - THINKING ABNORMAL [None]
  - URINE ANALYSIS ABNORMAL [None]
  - VOMITING [None]
